FAERS Safety Report 8395508-0 (Version None)
Quarter: 2012Q2

REPORT INFORMATION
  Report Type: 
  Country: None (occurrence: None)
  Receive Date: 20120530
  Receipt Date: 20110523
  Transmission Date: 20120825
  Serious: No
  Sender: FDA-Public Use
  Company Number: US-GLAXOSMITHKLINE-A0928558A

PATIENT
  Age: 74 Year
  Sex: Female

DRUGS (2)
  1. CALCIUM [Concomitant]
  2. VENTOLIN [Suspect]
     Indication: ASTHMA
     Dosage: 2PUFF VARIABLE DOSE
     Route: 055
     Dates: start: 20110509, end: 20110517

REACTIONS (5)
  - DYSPNOEA [None]
  - WHEEZING [None]
  - RHONCHI [None]
  - INHALATION THERAPY [None]
  - COUGH [None]
